FAERS Safety Report 19088174 (Version 1)
Quarter: 2021Q2

REPORT INFORMATION
  Report Type: Spontaneous
  Country: US (occurrence: US)
  Receive Date: 20210402
  Receipt Date: 20210402
  Transmission Date: 20210717
  Serious: Yes (Other)
  Sender: FDA-Public Use
  Company Number: US-BAYER-2021-115615

PATIENT
  Sex: Female

DRUGS (11)
  1. GADAVIST [Suspect]
     Active Substance: GADOBUTROL
     Dosage: UNK, ONCE
  2. KLONOPIN [Concomitant]
     Active Substance: CLONAZEPAM
  3. LIDOCAINE. [Concomitant]
     Active Substance: LIDOCAINE
  4. VENTOLIN [Concomitant]
     Active Substance: ALBUTEROL SULFATE
  5. PANTOPRAZOLE [Concomitant]
     Active Substance: PANTOPRAZOLE
  6. LUVOX [Concomitant]
     Active Substance: FLUVOXAMINE MALEATE
  7. VITAMIN B2 INJEEL [Concomitant]
  8. BACLOFEN. [Concomitant]
     Active Substance: BACLOFEN
  9. SYNTHROID [Concomitant]
     Active Substance: LEVOTHYROXINE SODIUM
  10. GABAPENTINE [Concomitant]
     Active Substance: GABAPENTIN
  11. LIPITOR [Concomitant]
     Active Substance: ATORVASTATIN CALCIUM

REACTIONS (1)
  - Contrast media reaction [None]
